FAERS Safety Report 20340487 (Version 2)
Quarter: 2022Q1

REPORT INFORMATION
  Report Type: Report from Study
  Country: PK (occurrence: PK)
  Receive Date: 20220117
  Receipt Date: 20220124
  Transmission Date: 20220423
  Serious: Yes (Death)
  Sender: FDA-Public Use
  Company Number: PK-NOVARTISPH-NVSC2022PK008025

PATIENT
  Age: 38 Year
  Sex: Male
  Weight: 40 kg

DRUGS (1)
  1. TASIGNA [Suspect]
     Active Substance: NILOTINIB
     Indication: Chronic myeloid leukaemia
     Dosage: 800 MG, BID
     Route: 048
     Dates: start: 20170617

REACTIONS (2)
  - Chronic myeloid leukaemia [Fatal]
  - Incorrect dose administered [Unknown]

NARRATIVE: CASE EVENT DATE: 20211211
